FAERS Safety Report 7763451-3 (Version None)
Quarter: 2011Q3

REPORT INFORMATION
  Report Type: 
  Country: None (occurrence: None)
  Receive Date: 20110920
  Receipt Date: 20110914
  Transmission Date: 20111222
  Serious: Yes (Death, Hospitalization, Other)
  Sender: FDA-Public Use
  Company Number: FR-PFIZER INC-2011216734

PATIENT
  Age: 85 Year
  Sex: Female

DRUGS (7)
  1. CELEBREX [Suspect]
     Indication: PAIN
     Dosage: 200 MG, UNK
     Route: 048
     Dates: start: 20110809, end: 20110819
  2. ACETAMINOPHEN [Concomitant]
  3. FUROSEMIDE [Suspect]
     Dosage: 40 MG, 1X/DAY
     Route: 048
  4. ALDACTAZIDE [Suspect]
     Dosage: UNK
     Route: 048
     Dates: end: 20110819
  5. NEXIUM [Concomitant]
  6. CANDESARTAN CILEXETIL AND HYDROCHLOROTHIAZIDE [Suspect]
     Dosage: UNK
     Route: 048
     Dates: end: 20110819
  7. SPIRIVA [Concomitant]

REACTIONS (3)
  - FAECALOMA [None]
  - MYOCARDIAL INFARCTION [None]
  - RENAL FAILURE ACUTE [None]
